FAERS Safety Report 5221062-8 (Version None)
Quarter: 2007Q1

REPORT INFORMATION
  Report Type: 
  Country: None (occurrence: None)
  Receive Date: 20070123
  Receipt Date: 20070115
  Transmission Date: 20070707
  Serious: Yes (Other)
  Sender: FDA-Public Use
  Company Number: 2007SP000839

PATIENT
  Age: 53 Year
  Sex: Male
  Weight: 78.4723 kg

DRUGS (4)
  1. PEG-INTRON [Suspect]
     Indication: HEPATITIS C
     Dates: start: 20060126
  2. REBETOL [Suspect]
     Indication: HEPATITIS C
     Dosage: PO
     Route: 048
     Dates: start: 20060126
  3. REMERON [Concomitant]
  4. TYLENOL EXTRA-STRENGTH [Concomitant]

REACTIONS (14)
  - CELLULITIS [None]
  - DEHYDRATION [None]
  - DEPRESSION [None]
  - DRUG ABUSER [None]
  - DYSGEUSIA [None]
  - HYPERTENSION [None]
  - INJECTION SITE PAIN [None]
  - MEMORY IMPAIRMENT [None]
  - MICTURITION URGENCY [None]
  - MIGRAINE [None]
  - URINARY INCONTINENCE [None]
  - VISUAL ACUITY REDUCED [None]
  - VOMITING [None]
  - WEIGHT DECREASED [None]
